FAERS Safety Report 23611588 (Version 1)
Quarter: 2024Q1

REPORT INFORMATION
  Report Type: Report from Study
  Country: BR (occurrence: BR)
  Receive Date: 20240308
  Receipt Date: 20240308
  Transmission Date: 20240409
  Serious: Yes (Hospitalization, Other)
  Sender: FDA-Public Use
  Company Number: BR-Merck Healthcare KGaA-2024009381

PATIENT
  Age: 61 Year
  Sex: Male

DRUGS (4)
  1. CETUXIMAB [Suspect]
     Active Substance: CETUXIMAB
     Indication: Squamous cell carcinoma of head and neck
     Dosage: 729.6 MG, 2/M
     Route: 042
     Dates: start: 20230607
  2. CETUXIMAB [Suspect]
     Active Substance: CETUXIMAB
     Dosage: 456 MG, 2/M
     Route: 042
  3. CARBOPLATIN [Suspect]
     Active Substance: CARBOPLATIN
     Indication: Squamous cell carcinoma of head and neck
     Dosage: UNK, UNKNOWN
     Route: 065
  4. ASPIRIN [Concomitant]
     Active Substance: ASPIRIN
     Indication: Myocardial infarction
     Dosage: UNK, UNKNOWN
     Route: 065

REACTIONS (6)
  - Choking [Recovered/Resolved]
  - Aspiration [Recovered/Resolved]
  - Pneumonia viral [Recovered/Resolved]
  - Malignant neoplasm progression [Unknown]
  - Jugular vein thrombosis [Recovering/Resolving]
  - Off label use [Unknown]

NARRATIVE: CASE EVENT DATE: 20230901
